FAERS Safety Report 11260529 (Version 1)
Quarter: 2015Q3

REPORT INFORMATION
  Report Type: Spontaneous
  Country: CA (occurrence: CA)
  Receive Date: 20150710
  Receipt Date: 20150710
  Transmission Date: 20151125
  Serious: Yes (Other)
  Sender: FDA-Public Use
  Company Number: CA-HOSPIRA-2769822

PATIENT
  Age: 15 Year
  Sex: Male
  Weight: 85 kg

DRUGS (2)
  1. ROCURONIUM BROMIDE. [Suspect]
     Active Substance: ROCURONIUM BROMIDE
     Indication: COMPUTERISED TOMOGRAM
     Dosage: ONCE
     Route: 042
  2. PROPOFOL. [Concomitant]
     Active Substance: PROPOFOL
     Indication: PRODUCT USED FOR UNKNOWN INDICATION
     Dosage: NOT REPORTED

REACTIONS (4)
  - Electroencephalogram abnormal [Recovered/Resolved]
  - Neuroleptic malignant syndrome [Recovered/Resolved]
  - Encephalopathy [Recovered/Resolved]
  - Seizure [Recovered/Resolved]
